FAERS Safety Report 9836183 (Version 3)
Quarter: 2015Q4

REPORT INFORMATION
  Report Type: Report from Study
  Country: US (occurrence: US)
  Receive Date: 20140123
  Receipt Date: 20151007
  Transmission Date: 20160305
  Serious: Yes (Death)
  Sender: FDA-Public Use
  Company Number: US-ROCHE-1337621

PATIENT
  Sex: Female
  Weight: 74.91 kg

DRUGS (20)
  1. ACTEMRA [Suspect]
     Active Substance: TOCILIZUMAB
     Indication: PRODUCT USED FOR UNKNOWN INDICATION
     Dosage: LAST DOSE RECEIVED ON 14/NOV/2012
     Route: 042
  2. ZYRTEC [Concomitant]
     Active Substance: CETIRIZINE HYDROCHLORIDE
  3. MIRALAX [Concomitant]
     Active Substance: POLYETHYLENE GLYCOL 3350
     Route: 065
  4. COMBIVENT [Concomitant]
     Active Substance: ALBUTEROL SULFATE\IPRATROPIUM BROMIDE
     Dosage: AS NEEDED
     Route: 065
  5. LORTAB (UNITED STATES) [Concomitant]
     Dosage: 7.5/500 AS NEEDED
     Route: 065
  6. LASIX [Concomitant]
     Active Substance: FUROSEMIDE
     Route: 065
  7. TEMAZEPAM. [Concomitant]
     Active Substance: TEMAZEPAM
     Route: 065
  8. LYRICA [Concomitant]
     Active Substance: PREGABALIN
     Route: 065
  9. RESTASIS [Concomitant]
     Active Substance: CYCLOSPORINE
  10. AMIODARONE [Concomitant]
     Active Substance: AMIODARONE
     Dosage: EVERY OTHER DAY - MON,WED,FRI
     Route: 065
  11. PLAVIX [Concomitant]
     Active Substance: CLOPIDOGREL BISULFATE
  12. COUMADIN [Concomitant]
     Active Substance: WARFARIN SODIUM
     Dosage: MONDAY, WEDNESDAY AND FRIDAY
     Route: 065
  13. TYLENOL [Concomitant]
     Active Substance: ACETAMINOPHEN
  14. LIPITOR [Concomitant]
     Active Substance: ATORVASTATIN CALCIUM
     Dosage: QHS
     Route: 065
  15. PANTOPRAZOLE [Concomitant]
     Active Substance: PANTOPRAZOLE SODIUM
     Route: 065
  16. SYNTHROID [Concomitant]
     Active Substance: LEVOTHYROXINE SODIUM
  17. RITUXAN [Suspect]
     Active Substance: RITUXIMAB
     Indication: RHEUMATOID ARTHRITIS
     Dosage: DAY 1 AND DAY 15
     Route: 042
     Dates: start: 20130212, end: 20130228
  18. COUMADIN [Concomitant]
     Active Substance: WARFARIN SODIUM
     Dosage: ALL OTHER
     Route: 065
  19. ECOTRIN [Concomitant]
     Active Substance: ASPIRIN
     Route: 065
  20. SPIRONOLACTONE. [Concomitant]
     Active Substance: SPIRONOLACTONE

REACTIONS (1)
  - Gallbladder cancer [Fatal]
